FAERS Safety Report 5741158-1 (Version None)
Quarter: 2008Q2

REPORT INFORMATION
  Report Type: 
  Country: None (occurrence: None)
  Receive Date: 20080516
  Receipt Date: 20080506
  Transmission Date: 20081010
  Serious: Yes (Other)
  Sender: FDA-Public Use
  Company Number: FR-PFIZER INC-2008040530

PATIENT
  Sex: Male

DRUGS (6)
  1. RELPAX [Suspect]
     Indication: MIGRAINE
  2. KETOPROFEN [Concomitant]
  3. NOCERTONE [Concomitant]
  4. LAROXYL [Concomitant]
  5. PROPOFAN [Concomitant]
  6. ACETAMINOPHEN [Concomitant]

REACTIONS (2)
  - DRUG ABUSE [None]
  - MIGRAINE [None]
